FAERS Safety Report 16789528 (Version 1)
Quarter: 2019Q3

REPORT INFORMATION
  Report Type: Spontaneous
  Country: JP (occurrence: JP)
  Receive Date: 20190910
  Receipt Date: 20190910
  Transmission Date: 20191005
  Serious: Yes (Hospitalization)
  Sender: FDA-Public Use
  Company Number: JP-ACTELION-A-CH2017-148308

PATIENT
  Age: 80 Year
  Sex: Male
  Weight: 58.5 kg

DRUGS (30)
  1. UPTRAVI [Suspect]
     Active Substance: SELEXIPAG
     Dosage: 0.6 MG, BID
     Route: 048
     Dates: start: 20161226, end: 20161227
  2. UPTRAVI [Suspect]
     Active Substance: SELEXIPAG
     Dosage: 1.0 MG, BID
     Route: 048
     Dates: start: 20161229, end: 20170101
  3. UPTRAVI [Suspect]
     Active Substance: SELEXIPAG
     Dosage: 1.6 MG, BID
     Route: 048
     Dates: start: 20170106
  4. DIART [Concomitant]
     Active Substance: AZOSEMIDE
  5. LANSOPRAZOLE. [Concomitant]
     Active Substance: LANSOPRAZOLE
     Indication: GASTROOESOPHAGEAL REFLUX DISEASE
     Dosage: 15 MG, QD
  6. OLMETEC [Concomitant]
     Active Substance: OLMESARTAN MEDOXOMIL
     Dosage: 20 MG, QD
     Dates: start: 20170121
  7. BROTIZOLAM [Concomitant]
     Active Substance: BROTIZOLAM
  8. OPSUMIT [Suspect]
     Active Substance: MACITENTAN
     Indication: PULMONARY ARTERIAL HYPERTENSION
     Dosage: 10 MG, QD
     Route: 048
     Dates: start: 20161213
  9. UPTRAVI [Suspect]
     Active Substance: SELEXIPAG
     Indication: PULMONARY ARTERIAL HYPERTENSION
     Dosage: 0.2 MG, BID
     Route: 048
     Dates: start: 20161221, end: 20161223
  10. UPTRAVI [Suspect]
     Active Substance: SELEXIPAG
     Dosage: 1.2 MG, BID
     Route: 048
     Dates: start: 20170102, end: 20170103
  11. LUPRAC [Concomitant]
     Active Substance: TORSEMIDE
     Indication: CARDIAC FAILURE
     Dosage: 8 MG, QD
     Dates: start: 20170108
  12. LYRICA [Concomitant]
     Active Substance: PREGABALIN
     Indication: BACK PAIN
     Dosage: 350 MG, QD
  13. ZETIA [Concomitant]
     Active Substance: EZETIMIBE
     Indication: HYPERCHOLESTEROLAEMIA
     Dosage: 10 MG, QD
  14. CALONAL [Concomitant]
     Active Substance: ACETAMINOPHEN
     Indication: HEADACHE
     Dosage: UNK
     Dates: start: 20170127
  15. EPADEL [Concomitant]
     Active Substance: ICOSAPENT
     Indication: HYPERCHOLESTEROLAEMIA
     Dosage: 1800 MG, QD
     Dates: start: 20170121
  16. UPTRAVI [Suspect]
     Active Substance: SELEXIPAG
     Dosage: 0.4 MG, BID
     Route: 048
     Dates: start: 20161224, end: 20161225
  17. UPTRAVI [Suspect]
     Active Substance: SELEXIPAG
     Dosage: 1.4 MG, BID
     Route: 048
     Dates: start: 20170104, end: 20170105
  18. EDIROL [Concomitant]
     Active Substance: ELDECALCITOL
     Indication: OSTEOPOROSIS
     Dosage: 0.75 MCG, QD
  19. FEBURIC [Concomitant]
     Active Substance: FEBUXOSTAT
     Indication: HYPERURICAEMIA
     Dosage: 10 MG, QD
     Dates: start: 20170111
  20. OXYGEN. [Concomitant]
     Active Substance: OXYGEN
  21. FERROUS CITRATE NA [Concomitant]
     Active Substance: SODIUM FERROUS CITRATE
  22. UPTRAVI [Suspect]
     Active Substance: SELEXIPAG
     Dosage: 0.8 MG, BID
     Route: 048
     Dates: start: 20161228, end: 20161228
  23. BAYASPIRIN [Concomitant]
     Active Substance: ASPIRIN
     Dosage: 100 MG, QD
  24. SPIRONOLACTONE. [Concomitant]
     Active Substance: SPIRONOLACTONE
  25. BERASUS [Concomitant]
     Active Substance: BERAPROST SODIUM
     Indication: PULMONARY ARTERIAL HYPERTENSION
     Dosage: 180 MCG, QD
  26. ADCIRCA [Concomitant]
     Active Substance: TADALAFIL
     Indication: PULMONARY ARTERIAL HYPERTENSION
     Dosage: 20 MG, QD
  27. MIYA-BM [Concomitant]
     Active Substance: CLOSTRIDIUM BUTYRICUM SPORES STRAIN M-55
     Dosage: 60 MG, QD
     Dates: start: 20170328
  28. ZOLPIDEM TARTRATE. [Concomitant]
     Active Substance: ZOLPIDEM TARTRATE
     Dosage: 5 MG, QD
     Dates: start: 20170330
  29. SLOW-K [Concomitant]
     Active Substance: POTASSIUM CHLORIDE
     Indication: HYPOKALAEMIA
     Dosage: 1200 MG, QD
     Dates: start: 20170330, end: 20170402
  30. AMLODIPINE [Concomitant]
     Active Substance: AMLODIPINE BESYLATE
     Dosage: 5 MG, QD
     Dates: start: 20170121

REACTIONS (4)
  - Concomitant disease aggravated [Recovering/Resolving]
  - Platelet count decreased [Unknown]
  - Right ventricular failure [Recovering/Resolving]
  - Headache [Recovering/Resolving]

NARRATIVE: CASE EVENT DATE: 20170106
